FAERS Safety Report 22020476 (Version 1)
Quarter: 2023Q1

REPORT INFORMATION
  Report Type: Spontaneous
  Country: US (occurrence: US)
  Receive Date: 20230222
  Receipt Date: 20230222
  Transmission Date: 20230417
  Serious: Yes (Other)
  Sender: FDA-Public Use
  Company Number: US-MYLANLABS-2023M1018890

PATIENT
  Age: 49 Year
  Sex: Male

DRUGS (12)
  1. FLUCONAZOLE [Suspect]
     Active Substance: FLUCONAZOLE
     Indication: Antifungal treatment
     Dosage: 800 MILLIGRAM, QD
     Route: 048
     Dates: start: 20170808, end: 20170917
  2. FLUCONAZOLE [Suspect]
     Active Substance: FLUCONAZOLE
     Indication: Antifungal treatment
     Dosage: UNK; INTRAVENOUS (NOT SPECIFIED)
     Route: 042
     Dates: start: 20170624
  3. FLUCONAZOLE [Suspect]
     Active Substance: FLUCONAZOLE
     Dosage: UNK; INTRAVENOUS (NOT SPECIFIED)
     Route: 042
     Dates: start: 20170917
  4. MICAFUNGIN [Suspect]
     Active Substance: MICAFUNGIN
     Indication: Antifungal treatment
     Dosage: UNK; INTRAVENOUS (NOT SPECIFIED)
     Route: 042
     Dates: start: 20170627
  5. MICAFUNGIN [Suspect]
     Active Substance: MICAFUNGIN
     Dosage: UNK; INTRAVENOUS (NOT SPECIFIED)
     Route: 042
     Dates: start: 20191101
  6. MICAFUNGIN [Suspect]
     Active Substance: MICAFUNGIN
     Dosage: UNK; INTRAVENOUS (NOT SPECIFIED)
     Route: 042
     Dates: start: 20200226
  7. AMPHOTERICIN B [Suspect]
     Active Substance: AMPHOTERICIN B
     Indication: Antifungal treatment
     Dosage: UNK; INTRAVENOUS (NOT SPECIFIED)
     Route: 042
     Dates: start: 20191122
  8. AMPHOTERICIN B [Suspect]
     Active Substance: AMPHOTERICIN B
     Dosage: UNK; INTRAVENOUS (NOT SPECIFIED)
     Route: 042
     Dates: start: 20200317
  9. FLUCYTOSINE [Suspect]
     Active Substance: FLUCYTOSINE
     Indication: Antifungal treatment
     Dosage: UNK; INTRAVENOUS (NOT SPECIFIED)
     Route: 042
     Dates: start: 20200317
  10. POSACONAZOLE [Suspect]
     Active Substance: POSACONAZOLE
     Indication: Antifungal treatment
     Dosage: UNK
     Route: 048
     Dates: start: 20190108
  11. PIPERACILLIN AND TAZOBACTAM [Concomitant]
     Active Substance: PIPERACILLIN SODIUM\TAZOBACTAM SODIUM
     Indication: Antibiotic therapy
     Dosage: UNK; INTRAVENOUS (NOT SPECIFIED)
     Route: 042
     Dates: start: 20170627
  12. VANCOMYCIN [Concomitant]
     Active Substance: VANCOMYCIN
     Indication: Antibiotic therapy
     Dosage: UNK; INTRAVENOUS (NOT SPECIFIED)
     Route: 042
     Dates: start: 20170627

REACTIONS (1)
  - Multiple-drug resistance [Unknown]
